FAERS Safety Report 24737293 (Version 1)
Quarter: 2024Q4

REPORT INFORMATION
  Report Type: Spontaneous
  Country: US (occurrence: None)
  Receive Date: 20241213
  Receipt Date: 20241213
  Transmission Date: 20250115
  Serious: No
  Sender: Public
  Company Number: None

PATIENT
  Age: 64 Year
  Sex: Male

DRUGS (1)
  1. OMEPRAZOLE [Suspect]
     Active Substance: OMEPRAZOLE
     Dates: start: 20190923, end: 20240716

REACTIONS (5)
  - Anaphylactic reaction [None]
  - Dyspnoea [None]
  - Hypotension [None]
  - Pruritus [None]
  - Syncope [None]

NARRATIVE: CASE EVENT DATE: 20240709
